FAERS Safety Report 7612139-8 (Version None)
Quarter: 2011Q3

REPORT INFORMATION
  Report Type: 
  Country: None (occurrence: None)
  Receive Date: 20110715
  Receipt Date: 20110708
  Transmission Date: 20111222
  Serious: Yes (Other)
  Sender: FDA-Public Use
  Company Number: US-ABBOTT-11P-163-0838030-00

PATIENT
  Sex: Female
  Weight: 63.56 kg

DRUGS (1)
  1. GENGRAF [Suspect]
     Indication: APLASTIC ANAEMIA
     Dates: start: 20100801

REACTIONS (2)
  - HAEMOGLOBIN DECREASED [None]
  - PLATELET COUNT DECREASED [None]
